FAERS Safety Report 6393798-7 (Version None)
Quarter: 2009Q4

REPORT INFORMATION
  Report Type: 
  Country: None (occurrence: None)
  Receive Date: 20091008
  Receipt Date: 20090930
  Transmission Date: 20100525
  Serious: Yes (Hospitalization)
  Sender: FDA-Public Use
  Company Number: US-ELI_LILLY_AND_COMPANY-US200910000286

PATIENT
  Sex: Female

DRUGS (4)
  1. ALIMTA [Suspect]
     Indication: LUNG ADENOCARCINOMA
     Dosage: 700 MG, UNK
     Dates: start: 20090915, end: 20090915
  2. ATORVASTATIN [Concomitant]
     Dosage: 80 MG, UNK
  3. LANSOPRAZOLE [Concomitant]
     Dosage: 30 MG, UNK
  4. CALCIUM [Concomitant]

REACTIONS (1)
  - HOSPITALISATION [None]
